FAERS Safety Report 7485778-5 (Version None)
Quarter: 2011Q2

REPORT INFORMATION
  Report Type: 
  Country: None (occurrence: None)
  Receive Date: 20110509
  Receipt Date: 20110428
  Transmission Date: 20111010
  Serious: Yes (Hospitalization)
  Sender: FDA-Public Use
  Company Number: MPS1-1000503

PATIENT
  Age: 3 Year
  Sex: Male

DRUGS (1)
  1. ALDURAZYME [Suspect]
     Indication: MUCOPOLYSACCHARIDOSIS I
     Dosage: 0.44 MG/KG, UNK, INTRAVENOUS
     Route: 042
     Dates: start: 20090624

REACTIONS (1)
  - INFLUENZA [None]
